FAERS Safety Report 13156526 (Version 2)
Quarter: 2017Q1

REPORT INFORMATION
  Report Type: Spontaneous
  Country: US (occurrence: US)
  Receive Date: 20170126
  Receipt Date: 20170330
  Transmission Date: 20170428
  Serious: Yes (Other)
  Sender: FDA-Public Use
  Company Number: US-ELI_LILLY_AND_COMPANY-US201608001334

PATIENT
  Age: 26 Year
  Sex: Female
  Weight: 98 kg

DRUGS (1)
  1. CYMBALTA [Suspect]
     Active Substance: DULOXETINE HYDROCHLORIDE
     Indication: PRODUCT USED FOR UNKNOWN INDICATION
     Dosage: 30 MG, UNKNOWN
     Route: 065

REACTIONS (25)
  - Confusional state [Unknown]
  - Hypomania [Unknown]
  - Suicide attempt [Unknown]
  - Suicidal ideation [Unknown]
  - Dysphoria [Unknown]
  - Mitral valve prolapse [Unknown]
  - Affect lability [Unknown]
  - Chest pain [Unknown]
  - Peripheral swelling [Unknown]
  - Tremor [Unknown]
  - Nausea [Unknown]
  - Drug withdrawal syndrome [Unknown]
  - Diarrhoea [Unknown]
  - Hyperhidrosis [Unknown]
  - Palpitations [Unknown]
  - Headache [Unknown]
  - Syncope [Unknown]
  - Paraesthesia [Unknown]
  - Anxiety [Unknown]
  - Fatigue [Unknown]
  - Dyspnoea [Unknown]
  - Joint swelling [Unknown]
  - Constipation [Unknown]
  - Dizziness [Unknown]
  - Insomnia [Unknown]

NARRATIVE: CASE EVENT DATE: 201401
